FAERS Safety Report 7277153-3 (Version None)
Quarter: 2011Q1

REPORT INFORMATION
  Report Type: 
  Country: None (occurrence: None)
  Receive Date: 20110202
  Receipt Date: 20110202
  Transmission Date: 20110831
  Serious: Yes (Other)
  Sender: FDA-Public Use
  Company Number: None

PATIENT
  Age: 28 Year
  Sex: Male
  Weight: 125.2 kg

DRUGS (2)
  1. CYMBALTA [Suspect]
     Indication: DEPRESSION
     Dosage: 120 MG DAILY PO
     Route: 048
     Dates: start: 20110116, end: 20110117
  2. FLUOXETINE [Suspect]
     Indication: DEPRESSION
     Dosage: 80 MG DAILY PO
     Route: 048
     Dates: start: 20110116, end: 20110117

REACTIONS (2)
  - SEROTONIN SYNDROME [None]
  - URINARY TRACT INFECTION [None]
